FAERS Safety Report 21308715 (Version 3)
Quarter: 2023Q1

REPORT INFORMATION
  Report Type: Report from Study
  Country: RU (occurrence: RU)
  Receive Date: 20220908
  Receipt Date: 20230117
  Transmission Date: 20230417
  Serious: Yes (Death, Other)
  Sender: FDA-Public Use
  Company Number: RU-TAKEDA-2022TUS062444

PATIENT
  Age: 14 Year
  Sex: Male
  Weight: 20 kg

DRUGS (21)
  1. IDURSULFASE [Suspect]
     Active Substance: IDURSULFASE
     Indication: Mucopolysaccharidosis II
     Dosage: UNK
     Route: 042
     Dates: start: 20110531
  2. IDURSULFASE [Suspect]
     Active Substance: IDURSULFASE
     Dosage: 0.5 MILLIGRAM/KILOGRAM, 1/WEEK
     Route: 042
     Dates: start: 20130401
  3. ENALAPRIL [Concomitant]
     Active Substance: ENALAPRIL
     Indication: Cardiac disorder
     Dosage: UNK
     Route: 048
  4. BISOPROLOL FUMARATE [Concomitant]
     Active Substance: BISOPROLOL FUMARATE
     Indication: Cardiac disorder
     Dosage: UNK
     Route: 048
  5. CAPOTEN [Concomitant]
     Active Substance: CAPTOPRIL
     Indication: Cardiac failure
     Dosage: UNK
     Route: 048
  6. CHLORPROTHIXENE [Concomitant]
     Active Substance: CHLORPROTHIXENE
     Indication: Psychomotor hyperactivity
     Dosage: UNK
     Route: 048
     Dates: start: 2014, end: 202001
  7. CHLORPROTHIXENE [Concomitant]
     Active Substance: CHLORPROTHIXENE
     Dosage: UNK
     Route: 048
     Dates: start: 20200212
  8. 4-AMINO-3-PHENYLBUTYRIC ACID [Concomitant]
     Active Substance: 4-AMINO-3-PHENYLBUTYRIC ACID
     Indication: Encephalopathy
     Dosage: UNK
     Route: 048
     Dates: start: 201405, end: 2015
  9. 4-AMINO-3-PHENYLBUTYRIC ACID [Concomitant]
     Active Substance: 4-AMINO-3-PHENYLBUTYRIC ACID
     Dosage: UNK
     Route: 048
     Dates: start: 201911
  10. CLARITHROMYCIN [Concomitant]
     Active Substance: CLARITHROMYCIN
     Indication: Pneumonia
     Dosage: UNK
     Route: 048
     Dates: start: 20180223
  11. CEFEPIME HYDROCHLORIDE [Concomitant]
     Active Substance: CEFEPIME HYDROCHLORIDE
     Indication: Pneumonia
     Dosage: UNK
     Route: 030
     Dates: start: 201803, end: 201803
  12. CEFUROXIME [Concomitant]
     Active Substance: CEFUROXIME
     Indication: Pneumonia
     Dosage: UNK
     Route: 048
     Dates: start: 201803, end: 201803
  13. Ceftriaxonum [Concomitant]
     Indication: Pneumonia
     Dosage: UNK
     Route: 030
     Dates: start: 201803, end: 201803
  14. FENOTEROL HYDROBROMIDE\IPRATROPIUM BROMIDE [Concomitant]
     Active Substance: FENOTEROL HYDROBROMIDE\IPRATROPIUM BROMIDE
     Indication: Pneumonia
     Dosage: UNK
     Route: 050
     Dates: start: 201803, end: 201803
  15. Naphthyzin [Concomitant]
     Indication: Pneumonia
     Dosage: UNK
     Route: 045
     Dates: start: 201803, end: 201803
  16. SPIRONOLACTONE [Concomitant]
     Active Substance: SPIRONOLACTONE
     Indication: Pulmonary oedema
     Dosage: UNK
     Route: 048
     Dates: start: 201803, end: 201803
  17. AZITHROMYCIN [Concomitant]
     Active Substance: AZITHROMYCIN
     Indication: Pneumonia
     Dosage: UNK
     Route: 048
     Dates: start: 20180313, end: 20180318
  18. AUGMENTIN [Concomitant]
     Active Substance: AMOXICILLIN\CLAVULANATE POTASSIUM
     Indication: Haematuria
     Dosage: UNK
     Route: 048
     Dates: start: 20180316
  19. AMPICILLIN AND SULBACTAM [Concomitant]
     Active Substance: AMPICILLIN SODIUM\SULBACTAM SODIUM
     Indication: Pneumonia
     Dosage: UNK
     Route: 048
     Dates: start: 201804, end: 201804
  20. AMOXICILLIN [Concomitant]
     Active Substance: AMOXICILLIN
     Indication: Pneumonia
     Dosage: UNK
     Route: 048
     Dates: start: 20180512, end: 20180518
  21. 4-AMINO-3-PHENYLBUTYRIC ACID [Concomitant]
     Active Substance: 4-AMINO-3-PHENYLBUTYRIC ACID
     Dosage: UNK
     Route: 048
     Dates: start: 201911

REACTIONS (1)
  - Cardiac failure [Fatal]

NARRATIVE: CASE EVENT DATE: 20220901
